FAERS Safety Report 14376048 (Version 3)
Quarter: 2019Q3

REPORT INFORMATION
  Report Type: Spontaneous
  Country: US (occurrence: US)
  Receive Date: 20180111
  Receipt Date: 20190822
  Transmission Date: 20191004
  Serious: Yes (Hospitalization, Other)
  Sender: FDA-Public Use
  Company Number: US-VERTEX PHARMACEUTICALS-2018-000164

PATIENT
  Age: 16 Year
  Sex: Male

DRUGS (16)
  1. CAYSTON [Concomitant]
     Active Substance: AZTREONAM
  2. HYPERTONIC SALINE SOLUTION [Concomitant]
     Active Substance: SODIUM CHLORIDE
  3. INSULIN DETEMIR [Concomitant]
     Active Substance: INSULIN DETEMIR
     Dosage: 25 UT, QD
     Route: 058
  4. INSULIN DETEMIR [Concomitant]
     Active Substance: INSULIN DETEMIR
     Dosage: 25 UT, QD
     Route: 058
  5. ORKAMBI [Suspect]
     Active Substance: IVACAFTOR\LUMACAFTOR
     Indication: CYSTIC FIBROSIS
     Dosage: 2 DOSAGE FORM 200/125 MG TABLETS, BID
     Route: 048
     Dates: start: 20150912
  6. PROAIR HFA [Concomitant]
     Active Substance: ALBUTEROL SULFATE
     Dosage: 90 MICROGRAM, 8.5 GRAM
     Route: 055
  7. ALBUTEROL;IPRATROPIUM [Concomitant]
     Dosage: (3-0.5 MG/3 ML) 3 ML
     Route: 055
  8. HUMALOG [Concomitant]
     Active Substance: INSULIN LISPRO
     Indication: HYPERGLYCAEMIA
  9. TOBI [Concomitant]
     Active Substance: TOBRAMYCIN
  10. TURMERIC [CURCUMA LONGA RHIZOME] [Concomitant]
     Active Substance: HERBALS\TURMERIC
  11. MICAFUNGIN. [Concomitant]
     Active Substance: MICAFUNGIN SODIUM
     Dosage: 100 MILLIGRAM, QD
     Route: 042
  12. PREVACID [Concomitant]
     Active Substance: LANSOPRAZOLE
     Dosage: 30 MG, QD
     Route: 048
  13. INSULIN DETEMIR [Concomitant]
     Active Substance: INSULIN DETEMIR
     Dosage: 28 UT, QD  (QHS)
     Route: 058
  14. PULMOZYME [Concomitant]
     Active Substance: DORNASE ALFA
     Dosage: 2.5 MILLIGRAM, QD
     Route: 055
  15. PRILOSEC [Concomitant]
     Active Substance: OMEPRAZOLE MAGNESIUM
     Dosage: 40 MG, QD
     Route: 048
  16. PERTZYE [Concomitant]
     Active Substance: PANCRELIPASE AMYLASE\PANCRELIPASE LIPASE\PANCRELIPASE PROTEASE
     Dosage: 6 CAPSULES BEFORE MEALS

REACTIONS (5)
  - Deep vein thrombosis [Recovering/Resolving]
  - Infective pulmonary exacerbation of cystic fibrosis [Recovered/Resolved]
  - Pneumonia [Recovering/Resolving]
  - Hypoglycaemia [Recovering/Resolving]
  - Blood glucose increased [Recovering/Resolving]

NARRATIVE: CASE EVENT DATE: 201812
